FAERS Safety Report 8362861 (Version 2)
Quarter: 2012Q4

REPORT INFORMATION
  Report Type: 
  Country: BR (occurrence: BR)
  Receive Date: 20120130
  Receipt Date: 20121031
  Transmission Date: 20130627
  Serious: Yes (Life-Threatening, Hospitalization)
  Sender: FDA-Public Use
  Company Number: PHHO2011BR021393

PATIENT
  Age: 62 Year
  Sex: Male
  Weight: 79.5 kg

DRUGS (12)
  1. BLINDED ALISKIREN [Suspect]
     Indication: CARDIAC FAILURE
     Dosage: Code not broken
     Route: 048
     Dates: start: 20100113, end: 20111220
  2. BLINDED ENALAPRIL [Suspect]
     Indication: CARDIAC FAILURE
     Dosage: Code not broken
     Route: 048
     Dates: start: 20100113, end: 20111220
  3. BLINDED NO TREATMENT RECEIVED [Suspect]
     Indication: CARDIAC FAILURE
     Dosage: Code not broken
     Route: 048
     Dates: start: 20100113, end: 20111220
  4. BLINDED ALISKIREN [Suspect]
     Dosage: Code not broken
     Route: 048
     Dates: start: 20120201
  5. BLINDED ENALAPRIL [Suspect]
     Dosage: Code not broken
     Route: 048
     Dates: start: 20120201
  6. BLINDED NO TREATMENT RECEIVED [Suspect]
     Dosage: Code not broken
     Route: 048
     Dates: start: 20120201
  7. DIGOXIN [Suspect]
     Dosage: 0.125 mg, QD
  8. FUROSEMIDE [Suspect]
     Dosage: 40 mg, QD
     Dates: end: 20111220
  9. CARVEDILOL [Concomitant]
     Dosage: 25 mg, BID
  10. AMIODARONE [Concomitant]
     Dosage: 200 mg, QD
  11. SPIRONOLACTONE [Concomitant]
     Dosage: 25 mg, QD
  12. SIMVASTATIN [Concomitant]
     Dosage: 40 mg, QD

REACTIONS (2)
  - Renal failure acute [Recovered/Resolved]
  - Ventricular tachycardia [Recovered/Resolved]
